FAERS Safety Report 9927424 (Version 2)
Quarter: 2014Q2

REPORT INFORMATION
  Report Type: Report from Study
  Country: GB (occurrence: GB)
  Receive Date: 20140226
  Receipt Date: 20140407
  Transmission Date: 20141212
  Serious: Yes (Hospitalization, Other)
  Sender: FDA-Public Use
  Company Number: GB-ROCHE-1356215

PATIENT
  Age: 85 Year
  Sex: Male

DRUGS (6)
  1. LUCENTIS [Suspect]
     Indication: PRODUCT USED FOR UNKNOWN INDICATION
     Route: 050
     Dates: start: 20120521
  2. LUCENTIS [Suspect]
     Route: 050
     Dates: start: 20120715
  3. LANSOPRAZOLE [Concomitant]
     Route: 065
     Dates: start: 20120101
  4. METFORMIN [Concomitant]
     Route: 065
     Dates: start: 1999
  5. VALSARTAN [Concomitant]
     Route: 065
     Dates: start: 20120101
  6. DIGOXIN [Concomitant]

REACTIONS (3)
  - Rectal haemorrhage [Recovered/Resolved]
  - Constipation [Unknown]
  - Fall [Unknown]
